FAERS Safety Report 19924781 (Version 1)
Quarter: 2021Q4

REPORT INFORMATION
  Report Type: Spontaneous
  Country: ES (occurrence: ES)
  Receive Date: 20211006
  Receipt Date: 20211006
  Transmission Date: 20220304
  Serious: Yes (Other)
  Sender: FDA-Public Use
  Company Number: None

PATIENT
  Age: 15 Year
  Sex: Female

DRUGS (4)
  1. ACYCLOVIR [Suspect]
     Active Substance: ACYCLOVIR
     Indication: Herpes zoster
     Route: 042
     Dates: start: 20210603, end: 20210610
  2. METHOTREXATE [Concomitant]
     Active Substance: METHOTREXATE
     Indication: Dermatomyositis
     Route: 058
     Dates: start: 20201005, end: 20210507
  3. SULFAMETHOXAZOLE\TRIMETHOPRIM [Concomitant]
     Active Substance: SULFAMETHOXAZOLE\TRIMETHOPRIM
     Indication: Prophylaxis
     Dosage: 80 MG/400 MG TABLETS, 20 TABLETS
     Route: 048
     Dates: start: 20210604, end: 20210610
  4. OSVICAL D [Concomitant]
     Indication: Prophylaxis
     Dosage: 600 MG/400 UI EFFERVESCENT GRANULATED, 60 ENVELOPES
     Route: 048
     Dates: start: 20201005

REACTIONS (1)
  - Acute kidney injury [Recovered/Resolved]

NARRATIVE: CASE EVENT DATE: 20210608
